FAERS Safety Report 5392088-9 (Version None)
Quarter: 2007Q3

REPORT INFORMATION
  Report Type: 
  Country: None (occurrence: None)
  Receive Date: 20070720
  Receipt Date: 20070713
  Transmission Date: 20080115
  Serious: Yes (Life-Threatening)
  Sender: FDA-Public Use
  Company Number: JP-BAYER-200710484BYL

PATIENT
  Age: 84 Year
  Sex: Male

DRUGS (1)
  1. CIPROFLOXACIN [Suspect]
     Dosage: UNIT DOSE: 200 MG
     Route: 048
     Dates: start: 20070711, end: 20070711

REACTIONS (1)
  - BLOOD PRESSURE DECREASED [None]
